FAERS Safety Report 7775534 (Version 5)
Quarter: 2012Q4

REPORT INFORMATION
  Report Type: Report from Study
  Country: FR (occurrence: FR)
  Receive Date: 20110127
  Receipt Date: 20121207
  Transmission Date: 20130627
  Serious: Yes (Life-Threatening, Hospitalization, Disabling, Other)
  Sender: FDA-Public Use
  Company Number: FR-BIOGENIDEC-2011BI002123

PATIENT
  Age: 26 Year
  Sex: Female

DRUGS (10)
  1. TYSABRI [Suspect]
     Indication: MULTIPLE SCLEROSIS
     Route: 042
     Dates: start: 20080708, end: 20100922
  2. VITAMIN D [Concomitant]
  3. ALMOGRAN [Concomitant]
     Indication: MIGRAINE
  4. IXPRIM [Concomitant]
     Indication: PAIN
  5. TRINORDIOL [Concomitant]
  6. LOVENOX [Concomitant]
     Indication: TOOTHACHE
  7. FUNGIZONE [Concomitant]
     Dates: end: 20110315
  8. INEXIUM [Concomitant]
  9. FORLAX [Concomitant]
  10. MOTILIUM [Concomitant]
     Indication: NAUSEA

REACTIONS (4)
  - Staphylococcal sepsis [Recovered/Resolved]
  - Septic shock [Recovered/Resolved]
  - Cystitis haemorrhagic [Unknown]
  - Pneumonia [Recovered/Resolved]
